FAERS Safety Report 5903189-8 (Version None)
Quarter: 2008Q3

REPORT INFORMATION
  Report Type: 
  Country: None (occurrence: None)
  Receive Date: 20080930
  Receipt Date: 20080922
  Transmission Date: 20090109
  Serious: Yes (Other)
  Sender: FDA-Public Use
  Company Number: US-JNJFOC-20080905798

PATIENT
  Sex: Female
  Weight: 63.5 kg

DRUGS (6)
  1. NEUTRA PHOS [Suspect]
     Indication: MINERAL SUPPLEMENTATION
     Route: 048
  2. NEUTRA PHOS [Suspect]
     Dosage: 6 PACKETS DAILY
     Route: 048
  3. NEUTRA PHOS K [Suspect]
     Indication: MINERAL SUPPLEMENTATION
     Route: 048
  4. NEUTRA PHOS K [Suspect]
     Route: 048
  5. OTHER MEDICATIONS [Concomitant]
     Route: 065
  6. FOSAMAX [Concomitant]
     Indication: OSTEOPOROSIS
     Route: 065

REACTIONS (2)
  - BLOOD PRESSURE INCREASED [None]
  - HEART RATE INCREASED [None]
